FAERS Safety Report 5819939-5 (Version None)
Quarter: 2008Q3

REPORT INFORMATION
  Report Type: 
  Country: None (occurrence: None)
  Receive Date: 20080717
  Receipt Date: 20080710
  Transmission Date: 20090109
  Serious: Yes (Other)
  Sender: FDA-Public Use
  Company Number: 2008AL008110

PATIENT
  Sex: Male

DRUGS (1)
  1. DIGOXIN [Suspect]
     Indication: ARRHYTHMIA

REACTIONS (16)
  - ANOREXIA [None]
  - ANXIETY [None]
  - COLD SWEAT [None]
  - DIZZINESS [None]
  - DYSPNOEA [None]
  - HALO VISION [None]
  - HYPOTENSION [None]
  - INJURY [None]
  - NAUSEA [None]
  - PAIN [None]
  - PALPITATIONS [None]
  - POLLAKIURIA [None]
  - QUALITY OF LIFE DECREASED [None]
  - URINE OUTPUT DECREASED [None]
  - VISION BLURRED [None]
  - VISUAL IMPAIRMENT [None]
